FAERS Safety Report 4965258-9 (Version None)
Quarter: 2006Q1

REPORT INFORMATION
  Report Type: 
  Country: None (occurrence: None)
  Receive Date: 20060201
  Receipt Date: 20051214
  Transmission Date: 20060701
  Serious: No
  Sender: FDA-Public Use
  Company Number: 2005PV005868

PATIENT
  Age: 77 Year
  Sex: Female
  Weight: 81.6475 kg

DRUGS (9)
  1. BYETTA [Suspect]
     Indication: DIABETES MELLITUS NON-INSULIN-DEPENDENT
     Dosage: 10 + 5 MCG; BID; SC
     Route: 058
     Dates: start: 20051101, end: 20051130
  2. BYETTA [Suspect]
     Indication: DIABETES MELLITUS NON-INSULIN-DEPENDENT
     Dosage: 10 + 5 MCG; BID; SC
     Route: 058
     Dates: start: 20051201
  3. ACTOPLUS MET [Concomitant]
  4. DIGOXIN [Concomitant]
  5. ZOCOR [Concomitant]
  6. ANACIN [Concomitant]
  7. ICAPS [Concomitant]
  8. SULFAMETHOXAZOLE [Concomitant]
  9. MULTIVITAMIN [Concomitant]

REACTIONS (3)
  - DRUG ERUPTION [None]
  - PRURITUS [None]
  - RASH GENERALISED [None]
